FAERS Safety Report 24286132 (Version 2)
Quarter: 2024Q3

REPORT INFORMATION
  Report Type: Spontaneous
  Country: JP (occurrence: None)
  Receive Date: 20240905
  Receipt Date: 20240913
  Transmission Date: 20241017
  Serious: Yes (Other)
  Sender: ASTRAZENECA
  Company Number: 2024A200930

PATIENT
  Age: 60 Year
  Sex: Female

DRUGS (7)
  1. FASLODEX [Suspect]
     Active Substance: FULVESTRANT
     Indication: Breast cancer female
     Dosage: DOSE UNKNOWN
     Route: 030
     Dates: start: 202212
  2. ANASTROZOLE [Concomitant]
     Active Substance: ANASTROZOLE
     Indication: Breast cancer female
     Dosage: DOSE UNKNOWN
     Route: 065
     Dates: start: 202209
  3. ABEMACICLIB [Concomitant]
     Active Substance: ABEMACICLIB
     Indication: Breast cancer female
     Dosage: DOSE UNKNOWN
     Route: 065
     Dates: start: 202212
  4. BEVACIZUMAB [Concomitant]
     Active Substance: BEVACIZUMAB
     Indication: Breast cancer female
     Dosage: DOSE UNKNOWN
     Route: 065
     Dates: start: 202304, end: 2023
  5. PACLITAXEL [Concomitant]
     Active Substance: PACLITAXEL
     Indication: Breast cancer female
     Dosage: DOSE UNKNOWN
     Route: 065
     Dates: start: 202304, end: 2023
  6. TRASTUZUMAB DERUXTECAN [Concomitant]
     Active Substance: TRASTUZUMAB DERUXTECAN
     Indication: Breast cancer female
     Route: 065
     Dates: start: 202306, end: 202404
  7. PEMBROLIZUMAB [Concomitant]
     Active Substance: PEMBROLIZUMAB
     Indication: Breast cancer female
     Dosage: DOSE UNKNOWN
     Route: 065
     Dates: start: 202404

REACTIONS (6)
  - Metastases to peritoneum [Unknown]
  - Metastases to pancreas [Unknown]
  - Metastases to meninges [Unknown]
  - Hepatic function abnormal [Unknown]
  - Jaundice cholestatic [Unknown]
  - Diplopia [Recovering/Resolving]

NARRATIVE: CASE EVENT DATE: 20230401
